FAERS Safety Report 7485325-8 (Version None)
Quarter: 2011Q2

REPORT INFORMATION
  Report Type: 
  Country: None (occurrence: None)
  Receive Date: 20110517
  Receipt Date: 20110509
  Transmission Date: 20111010
  Serious: Yes (Hospitalization)
  Sender: FDA-Public Use
  Company Number: CA-AMGEN-CANSP2011023733

PATIENT
  Age: 42 Year
  Sex: Female

DRUGS (1)
  1. SENSIPAR [Suspect]
     Indication: HYPERPARATHYROIDISM SECONDARY
     Dosage: 30 MG, QD
     Route: 048

REACTIONS (5)
  - BACK PAIN [None]
  - BLOOD CALCIUM INCREASED [None]
  - ABDOMINAL DISTENSION [None]
  - RENAL TRANSPLANT [None]
  - VOMITING [None]
